FAERS Safety Report 9968032 (Version 1)
Quarter: 2014Q1

REPORT INFORMATION
  Report Type: Report from Study
  Country: US (occurrence: US)
  Receive Date: 20140306
  Receipt Date: 20140306
  Transmission Date: 20141002
  Serious: No
  Sender: FDA-Public Use
  Company Number: US-ABBVIE-13P-163-1143699-00

PATIENT
  Age: 56 Year
  Sex: Female
  Weight: 71.73 kg

DRUGS (15)
  1. HUMIRA [Suspect]
     Indication: CROHN^S DISEASE
     Dates: start: 2011, end: 201301
  2. HUMIRA [Suspect]
     Indication: ANKYLOSING SPONDYLITIS
  3. CIMZIA [Suspect]
     Indication: CROHN^S DISEASE
     Dates: start: 201301, end: 201306
  4. CIMZIA [Suspect]
     Indication: ANKYLOSING SPONDYLITIS
  5. HUMIRA [Suspect]
     Indication: CROHN^S DISEASE
     Dates: start: 20130820
  6. HUMIRA [Suspect]
     Indication: ANKYLOSING SPONDYLITIS
  7. METHOTREXATE [Concomitant]
     Indication: CROHN^S DISEASE
  8. METHOTREXATE [Concomitant]
     Indication: ANKYLOSING SPONDYLITIS
  9. DIOVAN [Concomitant]
     Indication: BLOOD PRESSURE
  10. LEVOTHYROXINE [Concomitant]
     Indication: THYROID DISORDER
  11. EFFEXOR [Concomitant]
     Indication: DEPRESSION
  12. FOLIC ACID [Concomitant]
     Indication: VITAMIN SUPPLEMENTATION
  13. ALLEGRA [Concomitant]
     Indication: HYPERSENSITIVITY
  14. ASTELIN [Concomitant]
     Indication: HYPERSENSITIVITY
  15. ACIPHEX [Concomitant]
     Indication: GASTROOESOPHAGEAL REFLUX DISEASE

REACTIONS (7)
  - Scleritis [Not Recovered/Not Resolved]
  - Facial pain [Not Recovered/Not Resolved]
  - Nasopharyngitis [Recovered/Resolved]
  - Respiratory tract infection [Recovered/Resolved]
  - Influenza like illness [Recovered/Resolved]
  - Abdominal discomfort [Recovered/Resolved]
  - Flank pain [Not Recovered/Not Resolved]
